FAERS Safety Report 9185418 (Version 1)
Quarter: 2012Q4

REPORT INFORMATION
  Report Type: 
  Country: CO (occurrence: CO)
  Receive Date: 20121031
  Receipt Date: 20121031
  Transmission Date: 20130627
  Serious: Yes (Hospitalization)
  Sender: FDA-Public Use
  Company Number: CO-ELI_LILLY_AND_COMPANY-CO201210006579

PATIENT
  Age: 40 Year
  Sex: Female

DRUGS (3)
  1. CYMBALTA [Suspect]
     Indication: DEPRESSION
     Dosage: 30 mg, qd
     Route: 048
     Dates: start: 20120922, end: 20121007
  2. CYMBALTA [Suspect]
     Dosage: 60 mg, qd
     Dates: start: 20121008
  3. CYMBALTA [Suspect]
     Dosage: 30 mg, qd

REACTIONS (1)
  - Hypotension [Recovering/Resolving]
